FAERS Safety Report 14527215 (Version 3)
Quarter: 2018Q2

REPORT INFORMATION
  Report Type: Spontaneous
  Country: JP (occurrence: JP)
  Receive Date: 20180213
  Receipt Date: 20180625
  Transmission Date: 20180711
  Serious: Yes (Other)
  Sender: FDA-Public Use
  Company Number: JP-PFIZER INC-2018059965

PATIENT
  Age: 81 Year
  Sex: Male
  Weight: 35.9 kg

DRUGS (1)
  1. REVATIO [Suspect]
     Active Substance: SILDENAFIL CITRATE
     Indication: PULMONARY HYPERTENSION
     Dosage: 60 MG, DAILY
     Route: 048

REACTIONS (16)
  - Red blood cell count decreased [Unknown]
  - Lymphocyte count decreased [Unknown]
  - Basophil count increased [Unknown]
  - Bilirubin conjugated increased [Unknown]
  - White blood cell count increased [Unknown]
  - Blood urea increased [Unknown]
  - Bronchopulmonary aspergillosis [Not Recovered/Not Resolved]
  - Blood uric acid increased [Unknown]
  - Monocyte count increased [Unknown]
  - Blood pressure decreased [Unknown]
  - Blood chloride decreased [Unknown]
  - Blood creatine phosphokinase decreased [Unknown]
  - Neutrophil count increased [Unknown]
  - Blood creatinine increased [Unknown]
  - C-reactive protein increased [Unknown]
  - Blood albumin decreased [Unknown]

NARRATIVE: CASE EVENT DATE: 20180130
